FAERS Safety Report 4754142-1 (Version None)
Quarter: 2005Q3

REPORT INFORMATION
  Report Type: 
  Country: None (occurrence: None)
  Receive Date: 20050826
  Receipt Date: 19971029
  Transmission Date: 20060218
  Serious: Yes (Other)
  Sender: FDA-Public Use
  Company Number: JP-ABBOTT-05P-087-0307797-00

PATIENT
  Age: 76 Year
  Sex: Female

DRUGS (4)
  1. ERYTHROCIN [Suspect]
     Indication: PNEUMONIA
     Route: 050
  2. ERYTHROMYCIN [Suspect]
     Indication: PNEUMONIA
     Route: 048
  3. CIMETIDINE [Suspect]
     Indication: GASTROINTESTINAL HAEMORRHAGE
     Route: 050
  4. RIFAMPICIN [Concomitant]
     Indication: PNEUMONIA
     Route: 048

REACTIONS (3)
  - DEAFNESS [None]
  - DRUG INTERACTION [None]
  - OTITIS MEDIA [None]
